FAERS Safety Report 4754971-4 (Version None)
Quarter: 2005Q3

REPORT INFORMATION
  Report Type: 
  Country: None (occurrence: None)
  Receive Date: 20050829
  Receipt Date: 20050816
  Transmission Date: 20060218
  Serious: Yes (Death)
  Sender: FDA-Public Use
  Company Number: 200517285GDDC

PATIENT
  Age: 62 Year
  Sex: Male
  Weight: 120 kg

DRUGS (8)
  1. AMAREL [Suspect]
     Indication: DIABETES MELLITUS INSULIN-DEPENDENT
     Route: 048
     Dates: end: 20040416
  2. DOLIPRANE [Suspect]
     Indication: MYALGIA
     Route: 048
     Dates: start: 20040416, end: 20040417
  3. DOLIPRANE [Suspect]
     Indication: MYOSITIS
     Route: 048
     Dates: start: 20040416, end: 20040417
  4. OMEPRAZOLE [Suspect]
     Indication: GASTRIC ULCER
     Route: 048
     Dates: end: 20040419
  5. CREON [Suspect]
     Route: 048
     Dates: end: 20040419
  6. TRANDATE [Suspect]
     Indication: HYPERTENSION
     Route: 048
     Dates: end: 20040416
  7. UPFEN [Suspect]
     Indication: MYALGIA
     Route: 048
     Dates: start: 20040416, end: 20040417
  8. UPFEN [Suspect]
     Indication: MYOSITIS
     Route: 048
     Dates: start: 20040416, end: 20040417

REACTIONS (11)
  - ANURIA [None]
  - DEPRESSED LEVEL OF CONSCIOUSNESS [None]
  - ERYSIPELAS [None]
  - HAEMODIALYSIS [None]
  - HYPOGLYCAEMIA [None]
  - MULTI-ORGAN FAILURE [None]
  - NECROTISING FASCIITIS [None]
  - RESPIRATORY DISTRESS [None]
  - SEPTIC SHOCK [None]
  - STREPTOCOCCAL INFECTION [None]
  - THROMBOCYTOPENIA [None]
